FAERS Safety Report 9163016 (Version 1)
Quarter: 2013Q1

REPORT INFORMATION
  Report Type: Spontaneous
  Country: CA (occurrence: CA)
  Receive Date: 20130314
  Receipt Date: 20130314
  Transmission Date: 20140127
  Serious: Yes (Other)
  Sender: FDA-Public Use
  Company Number: PHHY2013CA023497

PATIENT
  Age: 54 Year
  Sex: Male

DRUGS (3)
  1. TACROLIMUS [Suspect]
     Indication: IMMUNOSUPPRESSION
  2. BASILIXIMAB [Concomitant]
     Indication: IMMUNOSUPPRESSION
  3. MYCOPHENOLATE MOFETIL [Concomitant]
     Indication: IMMUNOSUPPRESSION

REACTIONS (12)
  - Osmotic demyelination syndrome [Unknown]
  - Locked-in syndrome [Unknown]
  - Depressed level of consciousness [Unknown]
  - Somnolence [Unknown]
  - Cognitive disorder [Recovering/Resolving]
  - Pneumonia aspiration [Unknown]
  - Pyrexia [Unknown]
  - Intra-abdominal haemorrhage [Unknown]
  - Staphylococcal infection [Unknown]
  - Encephalopathy [Unknown]
  - Tremor [Unknown]
  - Pancytopenia [Unknown]
